FAERS Safety Report 6193004-2 (Version None)
Quarter: 2009Q2

REPORT INFORMATION
  Report Type: 
  Country: None (occurrence: None)
  Receive Date: 20090518
  Receipt Date: 20090417
  Transmission Date: 20091009
  Serious: No
  Sender: FDA-Public Use
  Company Number: US-BAYER-200914085NA

PATIENT
  Age: 29 Year
  Sex: Female
  Weight: 125 kg

DRUGS (2)
  1. MIRENA [Suspect]
     Indication: MENORRHAGIA
     Dosage: CONTINUOUS
     Route: 015
     Dates: start: 20081019, end: 20090212
  2. CLARITIN [Concomitant]
     Indication: MULTIPLE ALLERGIES
     Route: 048

REACTIONS (4)
  - ABDOMINAL PAIN UPPER [None]
  - HAEMATURIA [None]
  - PROTEIN URINE PRESENT [None]
  - SWELLING FACE [None]
